FAERS Safety Report 10615155 (Version 1)
Quarter: 2014Q4

REPORT INFORMATION
  Report Type: Spontaneous
  Country: US (occurrence: None)
  Receive Date: 20141126
  Receipt Date: 20141126
  Transmission Date: 20150529
  Serious: No
  Sender: FDA-Public Use
  Company Number: None

PATIENT

DRUGS (1)
  1. CLOFARABINE [Suspect]
     Active Substance: CLOFARABINE

REACTIONS (5)
  - Hypotension [None]
  - Toxic epidermal necrolysis [None]
  - Sepsis [None]
  - Disseminated intravascular coagulation [None]
  - Acute kidney injury [None]
